FAERS Safety Report 16652846 (Version 1)
Quarter: 2019Q3

REPORT INFORMATION
  Report Type: Spontaneous
  Country: GB (occurrence: GB)
  Receive Date: 20190731
  Receipt Date: 20190731
  Transmission Date: 20191004
  Serious: Yes (Disabling)
  Sender: FDA-Public Use
  Company Number: PHHY2019GB174625

PATIENT
  Age: 71 Year
  Sex: Male

DRUGS (2)
  1. SIMVASTATIN. [Concomitant]
     Active Substance: SIMVASTATIN
     Indication: PRODUCT USED FOR UNKNOWN INDICATION
     Dosage: 40 MG, QD
     Route: 065
  2. ATORVASTATIN [Suspect]
     Active Substance: ATORVASTATIN
     Indication: PRODUCT USED FOR UNKNOWN INDICATION
     Dosage: 40 MG, UNK
     Route: 065

REACTIONS (11)
  - Orthostatic hypotension [Unknown]
  - Hypotonia [Unknown]
  - Insomnia [Unknown]
  - Pallor [Unknown]
  - Cold sweat [Unknown]
  - Muscle spasms [Unknown]
  - Dyspnoea [Unknown]
  - Muscle twitching [Unknown]
  - Glomerular filtration rate decreased [Unknown]
  - Product dispensing error [Unknown]
  - Tremor [Unknown]

NARRATIVE: CASE EVENT DATE: 20190418
